FAERS Safety Report 23912284 (Version 1)
Quarter: 2024Q2

REPORT INFORMATION
  Report Type: Spontaneous
  Country: US (occurrence: US)
  Receive Date: 20240528
  Receipt Date: 20240528
  Transmission Date: 20240716
  Serious: No
  Sender: FDA-Public Use
  Company Number: US-Dermavant-001065

PATIENT
  Sex: Female

DRUGS (1)
  1. TAPINAROF [Suspect]
     Active Substance: TAPINAROF
     Indication: Hand dermatitis

REACTIONS (3)
  - Application site swelling [Recovered/Resolved]
  - Skin tightness [Not Recovered/Not Resolved]
  - Drug ineffective for unapproved indication [Unknown]
